FAERS Safety Report 21440961 (Version 3)
Quarter: 2025Q1

REPORT INFORMATION
  Report Type: Spontaneous
  Country: US (occurrence: US)
  Receive Date: 20221011
  Receipt Date: 20250304
  Transmission Date: 20250408
  Serious: No
  Sender: NOVARTIS
  Company Number: US-NOVARTISTESTPH-NVSC2022US227446

PATIENT
  Age: 37 Year
  Sex: Female

DRUGS (1)
  1. KESIMPTA [Suspect]
     Active Substance: OFATUMUMAB
     Indication: Product used for unknown indication
     Route: 065

REACTIONS (2)
  - Maternal exposure timing unspecified [Unknown]
  - Normal newborn [Unknown]

NARRATIVE: CASE EVENT DATE: 20230509
